FAERS Safety Report 22024877 (Version 3)
Quarter: 2023Q2

REPORT INFORMATION
  Report Type: Spontaneous
  Country: CA (occurrence: CA)
  Receive Date: 20230223
  Receipt Date: 20230419
  Transmission Date: 20230722
  Serious: Yes (Other)
  Sender: FDA-Public Use
  Company Number: CA-PFIZER INC-202201300453

PATIENT
  Age: 49 Year
  Sex: Female

DRUGS (2)
  1. ABRILADA [Suspect]
     Active Substance: ADALIMUMAB-AFZB
     Indication: Ankylosing spondylitis
     Dosage: 40 MG, EVERY 2 WEEKS, PREFILLED PEN
     Route: 058
     Dates: start: 20221115
  2. CELEBREX [Concomitant]
     Active Substance: CELECOXIB
     Indication: Ankylosing spondylitis
     Dosage: 1 DF
     Route: 048
     Dates: start: 202205

REACTIONS (6)
  - Lower respiratory tract infection viral [Recovering/Resolving]
  - Loss of consciousness [Not Recovered/Not Resolved]
  - Injury [Not Recovered/Not Resolved]
  - Pulmonary oedema [Recovering/Resolving]
  - Pain [Unknown]
  - Illness [Recovering/Resolving]

NARRATIVE: CASE EVENT DATE: 20230101
